FAERS Safety Report 17690563 (Version 2)
Quarter: 2020Q2

REPORT INFORMATION
  Report Type: Spontaneous
  Country: US (occurrence: US)
  Receive Date: 20200421
  Receipt Date: 20200617
  Transmission Date: 20200714
  Serious: Yes (Life-Threatening)
  Sender: FDA-Public Use
  Company Number: US-ASTRAZENECA-2020SE52944

PATIENT
  Sex: Male
  Weight: 81.6 kg

DRUGS (15)
  1. HYDROCHLORTHIAZIDE [Concomitant]
     Active Substance: HYDROCHLOROTHIAZIDE
     Dosage: 25
     Route: 065
  2. LANTANPROST [Concomitant]
     Indication: GLAUCOMA
     Route: 065
  3. LEVOTHYROXINE. [Concomitant]
     Active Substance: LEVOTHYROXINE
     Dosage: 75
     Route: 065
  4. SYMBICORT [Suspect]
     Active Substance: BUDESONIDE\FORMOTEROL FUMARATE DIHYDRATE
     Indication: ASTHMA
     Dosage: 160, 4.5 UG/INHAL, TWO TIMES A DAY
     Route: 055
  5. AMLODIPINE [Concomitant]
     Active Substance: AMLODIPINE BESYLATE
     Dosage: 5
     Route: 065
  6. ATORVASTATIN [Concomitant]
     Active Substance: ATORVASTATIN
     Indication: CARDIOVASCULAR DISORDER
     Dosage: 40
     Route: 065
  7. MINERAL OIL. [Concomitant]
     Active Substance: MINERAL OIL
     Dosage: 1.0OZ UNKNOWN
     Route: 065
  8. METAMUCIL [Concomitant]
     Active Substance: PLANTAGO SEED
     Route: 065
  9. MVI [Concomitant]
     Active Substance: VITAMINS
     Route: 065
  10. PANTAPROZOLE [Concomitant]
     Active Substance: PANTOPRAZOLE SODIUM
     Dosage: 40
     Route: 065
  11. TERAZOSIN [Concomitant]
     Active Substance: TERAZOSIN HYDROCHLORIDE
     Indication: PROSTATE CANCER
     Dosage: 5
     Route: 065
  12. CELEBREX [Concomitant]
     Active Substance: CELECOXIB
     Indication: ANTIINFLAMMATORY THERAPY
     Route: 065
  13. TRAMADOL. [Concomitant]
     Active Substance: TRAMADOL
     Indication: PAIN
     Dosage: 50
     Route: 065
  14. IPITROPIUM NEBULIZER [Concomitant]
     Route: 065
  15. PLAVIX [Concomitant]
     Active Substance: CLOPIDOGREL BISULFATE
     Dosage: 75
     Route: 065

REACTIONS (7)
  - Intentional device misuse [Unknown]
  - Dyspnoea [Unknown]
  - Device issue [Unknown]
  - Atrial fibrillation [Unknown]
  - Product dose omission [Unknown]
  - Gastrointestinal disorder [Unknown]
  - Aortic arteriosclerosis [Unknown]
